FAERS Safety Report 6466085-6 (Version None)
Quarter: 2009Q4

REPORT INFORMATION
  Report Type: 
  Country: None (occurrence: None)
  Receive Date: 20091127
  Receipt Date: 20091119
  Transmission Date: 20100525
  Serious: Yes (Other)
  Sender: FDA-Public Use
  Company Number: 2009SP037636

PATIENT
  Sex: Female

DRUGS (4)
  1. CLARITIN [Suspect]
     Indication: PRURITUS
     Dosage: 10 MG, ONCE; PO
     Route: 048
  2. CLARITIN [Suspect]
     Indication: RHINORRHOEA
     Dosage: 10 MG, ONCE; PO
     Route: 048
  3. CLARITIN [Suspect]
     Indication: SNEEZING
     Dosage: 10 MG, ONCE; PO
     Route: 048
  4. ATEROL [Concomitant]

REACTIONS (5)
  - DRY THROAT [None]
  - EYE OEDEMA [None]
  - FACE OEDEMA [None]
  - SOMNOLENCE [None]
  - THROAT TIGHTNESS [None]
